FAERS Safety Report 5317850-X (Version None)
Quarter: 2007Q3

REPORT INFORMATION
  Report Type: 
  Country: None (occurrence: None)
  Receive Date: 20070430
  Receipt Date: 20070413
  Transmission Date: 20080115
  Serious: Yes (Other)
  Sender: FDA-Public Use
  Company Number: 155587ISR

PATIENT
  Age: 39 Year
  Sex: Male

DRUGS (3)
  1. MESALAMINE [Suspect]
     Indication: CROHN'S DISEASE
  2. URSODIOL [Concomitant]
  3. SALBUTAMOL [Concomitant]

REACTIONS (1)
  - ALLERGIC GRANULOMATOUS ANGIITIS [None]
